FAERS Safety Report 5407588-2 (Version None)
Quarter: 2007Q3

REPORT INFORMATION
  Report Type: 
  Country: None (occurrence: None)
  Receive Date: 20070807
  Receipt Date: 20070803
  Transmission Date: 20080115
  Serious: Yes (Hospitalization, Disabling, Other)
  Sender: FDA-Public Use
  Company Number: GB-BOEHRINGER INGELHEIM PHARMACEUTICALS, INC.-2007-UK-01460UK

PATIENT
  Sex: Male

DRUGS (7)
  1. SPIRIVA [Suspect]
     Route: 055
     Dates: start: 20070503, end: 20070503
  2. BENDROFLUAZIDE [Concomitant]
     Indication: HYPERTENSION
     Route: 048
     Dates: start: 20070101
  3. RAMIPRIL [Concomitant]
     Indication: HYPERTENSION
     Route: 048
     Dates: start: 20061101
  4. SODIUM ALENDRONATE [Concomitant]
     Indication: OSTEOPOROSIS
     Dosage: 70 WEEKLY
     Route: 048
     Dates: start: 20060701
  5. BUDESONIDE [Concomitant]
     Indication: CHRONIC OBSTRUCTIVE PULMONARY DISEASE
     Dosage: 200/6 2 DAILY
     Route: 055
     Dates: start: 20060101
  6. CALCIUM CHLORIDE [Concomitant]
  7. VITAMIN D3 [Concomitant]

REACTIONS (5)
  - CEREBROVASCULAR ACCIDENT [None]
  - CONFUSIONAL STATE [None]
  - HEMIPARESIS [None]
  - MUSCULAR WEAKNESS [None]
  - SOMNOLENCE [None]
